FAERS Safety Report 5799270-7 (Version None)
Quarter: 2008Q3

REPORT INFORMATION
  Report Type: 
  Country: None (occurrence: None)
  Receive Date: 20080702
  Receipt Date: 20080624
  Transmission Date: 20090109
  Serious: Yes (Other)
  Sender: FDA-Public Use
  Company Number: JP-PFIZER INC-2008049404

PATIENT
  Sex: Male
  Weight: 52 kg

DRUGS (9)
  1. CAMPTO [Suspect]
     Indication: RECTAL CANCER
     Dosage: DAILY DOSE:100MG
     Route: 042
     Dates: start: 20080519, end: 20080519
  2. TEGAFUR/GIMERACIL/OTERACIL POTASSIUM [Suspect]
     Indication: RECTAL CANCER
     Dosage: DAILY DOSE:100MG
     Route: 048
     Dates: start: 20080519, end: 20080602
  3. PREDONINE [Suspect]
     Indication: STEROID THERAPY
     Dosage: DAILY DOSE:45MG
     Route: 042
     Dates: start: 20080606, end: 20080624
  4. GRANISETRON HCL [Concomitant]
     Indication: NAUSEA
     Dosage: TEXT:1 DF
     Route: 042
     Dates: start: 20080519, end: 20080519
  5. DECADRON [Concomitant]
     Indication: NAUSEA
     Dosage: DAILY DOSE:8MG
     Route: 042
     Dates: start: 20080519, end: 20080519
  6. AMARYL [Concomitant]
     Indication: DIABETES MELLITUS
     Dosage: DAILY DOSE:1MG
     Route: 048
     Dates: start: 20080519, end: 20080603
  7. TAKEPRON [Concomitant]
     Indication: GASTRIC ULCER
     Dosage: DAILY DOSE:15MG
     Route: 048
     Dates: start: 20080519, end: 20080603
  8. FERROMIA [Concomitant]
     Indication: ANAEMIA
     Dosage: DAILY DOSE:100MG
     Route: 048
     Dates: start: 20080519, end: 20080603
  9. SOLU-MEDROL [Concomitant]
     Indication: STEROID THERAPY
     Dosage: DAILY DOSE:500MG
     Route: 042
     Dates: start: 20080603, end: 20080605

REACTIONS (2)
  - DIARRHOEA [None]
  - STEVENS-JOHNSON SYNDROME [None]
